FAERS Safety Report 8557669-X (Version None)
Quarter: 2012Q3

REPORT INFORMATION
  Report Type: 
  Country: None (occurrence: None)
  Receive Date: 20120801
  Receipt Date: 20120718
  Transmission Date: 20120928
  Serious: Yes (Hospitalization)
  Sender: FDA-Public Use
  Company Number: US-ELI_LILLY_AND_COMPANY-US201207006089

PATIENT
  Age: 30 Year
  Sex: Male

DRUGS (3)
  1. ZYPREXA [Suspect]
     Indication: PSYCHOTIC DISORDER
     Dosage: 7.5 MG, QD
  2. OLANZAPINE [Suspect]
     Indication: PSYCHOTIC DISORDER
  3. ZYPREXA [Suspect]
     Dosage: 20 MG, QD

REACTIONS (3)
  - WEIGHT INCREASED [None]
  - HOSPITALISATION [None]
  - MUSCULOSKELETAL STIFFNESS [None]
